FAERS Safety Report 5092867-1 (Version None)
Quarter: 2006Q3

REPORT INFORMATION
  Report Type: 
  Country: None (occurrence: None)
  Receive Date: 20060727
  Receipt Date: 20060621
  Transmission Date: 20061208
  Serious: Yes (Other)
  Sender: FDA-Public Use
  Company Number: 2006079248

PATIENT
  Age: 61 Year
  Sex: Female
  Weight: 77.1115 kg

DRUGS (12)
  1. LYRICA [Suspect]
     Indication: NEUROPATHY PERIPHERAL
     Dosage: 150 MG (75 MG,2 IN 1 D),ORAL
     Route: 048
     Dates: start: 20060612
  2. BENICAR [Concomitant]
  3. WELLBUTRIN [Concomitant]
  4. PRILOSEC [Concomitant]
  5. PRAVACHOL [Concomitant]
  6. MOBIC [Concomitant]
  7. XALATAN [Concomitant]
  8. BETOPTIC-S (BETAXOLOL HYDROCHLORIDE) [Concomitant]
  9. ALL OTHER THERAPEUTIC PRODUCTS (ALL OTHER THERAPEUTIC PRODUCTS) [Concomitant]
  10. VITAMINS (VITAMINS) [Concomitant]
  11. ASPIRIN [Concomitant]
  12. FISH OIL (FISH OIL) [Concomitant]

REACTIONS (2)
  - MEMORY IMPAIRMENT [None]
  - THINKING ABNORMAL [None]
